FAERS Safety Report 24380737 (Version 3)
Quarter: 2024Q4

REPORT INFORMATION
  Report Type: Report from Study
  Country: CA (occurrence: CA)
  Receive Date: 20240930
  Receipt Date: 20241008
  Transmission Date: 20250114
  Serious: Yes (Hospitalization)
  Sender: EISAI
  Company Number: CA-Eisai-EC-2024-175594

PATIENT
  Age: 76 Year
  Sex: Female

DRUGS (4)
  1. LENVIMA [Suspect]
     Active Substance: LENVATINIB
     Indication: Thyroid cancer
     Route: 048
     Dates: start: 20240424, end: 202406
  2. LENVIMA [Suspect]
     Active Substance: LENVATINIB
     Dosage: STOPPED: JUN//2024
     Route: 048
     Dates: start: 20240621
  3. LENVIMA [Suspect]
     Active Substance: LENVATINIB
     Route: 048
     Dates: start: 20240827, end: 202409
  4. LENVIMA [Suspect]
     Active Substance: LENVATINIB
     Dosage: STOPPED: SEP//2024
     Route: 048
     Dates: start: 20240911

REACTIONS (4)
  - Stomatitis [Recovering/Resolving]
  - Back pain [Unknown]
  - Malignant neoplasm progression [Unknown]
  - Stomatitis haemorrhagic [Not Recovered/Not Resolved]

NARRATIVE: CASE EVENT DATE: 20240101
